FAERS Safety Report 4799958-0 (Version None)
Quarter: 2005Q4

REPORT INFORMATION
  Report Type: 
  Country: None (occurrence: None)
  Receive Date: 20051017
  Receipt Date: 20030702
  Transmission Date: 20060501
  Serious: Yes (Other)
  Sender: FDA-Public Use
  Company Number: 200316609GDDC

PATIENT
  Age: 78 Year
  Sex: Female

DRUGS (14)
  1. RIFAMPICIN [Suspect]
     Indication: INFECTION
     Route: 048
     Dates: start: 20030502, end: 20030516
  2. ZYVOX [Suspect]
     Indication: INFECTION
     Route: 048
     Dates: start: 20030502, end: 20030516
  3. ASPIRIN [Concomitant]
  4. DILTIAZEM [Concomitant]
  5. QUININE SULFATE [Concomitant]
  6. DIDRONEL PMO ^NORWICH EATON^ [Concomitant]
     Dosage: DOSE: UNK
  7. TAMSULOSIN [Concomitant]
     Dosage: DOSE: UNK
  8. CO-DYDRAMOL [Concomitant]
     Dosage: DOSE: 20/500
     Route: 048
  9. GTN [Concomitant]
     Indication: CHEST PAIN
     Dosage: DOSE: UNK
     Route: 060
  10. FRUSEMIDE [Concomitant]
     Route: 048
  11. IRON SULFATETHIAMIN COMPOUND TAB [Concomitant]
     Route: 048
  12. LACTULOSE [Concomitant]
     Dosage: DOSE: UNK
     Route: 048
  13. PANTOPRAZOLE [Concomitant]
  14. SIMVASTATIN [Concomitant]

REACTIONS (6)
  - ALANINE AMINOTRANSFERASE INCREASED [None]
  - ASPARTATE AMINOTRANSFERASE INCREASED [None]
  - BLOOD ALKALINE PHOSPHATASE INCREASED [None]
  - JAUNDICE [None]
  - MOUTH HAEMORRHAGE [None]
  - MOUTH ULCERATION [None]
